FAERS Safety Report 20009289 (Version 3)
Quarter: 2022Q1

REPORT INFORMATION
  Report Type: Report from Study
  Country: US (occurrence: US)
  Receive Date: 20211028
  Receipt Date: 20220315
  Transmission Date: 20220423
  Serious: Yes (Other)
  Sender: FDA-Public Use
  Company Number: US-ABBVIE-21K-163-4138063-00

PATIENT
  Sex: Female

DRUGS (4)
  1. RINVOQ [Suspect]
     Active Substance: UPADACITINIB
     Indication: Rheumatoid arthritis
     Route: 048
  2. RINVOQ [Suspect]
     Active Substance: UPADACITINIB
     Route: 048
  3. MODERNA COVID-19 VACCINE [Concomitant]
     Active Substance: ELASOMERAN
     Indication: COVID-19 immunisation
     Dosage: FIRST DOSE
     Route: 030
     Dates: start: 20210325, end: 20210325
  4. MODERNA COVID-19 VACCINE [Concomitant]
     Active Substance: ELASOMERAN
     Dosage: SECOND DOSE
     Route: 030
     Dates: start: 20210422, end: 20210422

REACTIONS (10)
  - Adrenal neoplasm [Recovered/Resolved]
  - Idiopathic intracranial hypertension [Unknown]
  - Spinal operation [Recovering/Resolving]
  - Migraine [Unknown]
  - Hypersensitivity [Recovering/Resolving]
  - Hypoaesthesia [Unknown]
  - Pain [Unknown]
  - Weight decreased [Unknown]
  - Injury [Recovered/Resolved]
  - Nasopharyngitis [Recovered/Resolved with Sequelae]

NARRATIVE: CASE EVENT DATE: 20200101
